FAERS Safety Report 9468613 (Version 2)
Quarter: 2013Q3

REPORT INFORMATION
  Report Type: Report from Study
  Country: US (occurrence: US)
  Receive Date: 20130821
  Receipt Date: 20130821
  Transmission Date: 20140515
  Serious: Yes (Hospitalization)
  Sender: FDA-Public Use
  Company Number: US-ASTELLAS-2013EU004370

PATIENT
  Age: 65 Year
  Sex: Female
  Weight: 43 kg

DRUGS (83)
  1. BLINDED FIDAXOMICIN [Suspect]
     Indication: PROPHYLAXIS
     Dosage: 1 TABLET, QD
     Route: 048
     Dates: start: 20130329, end: 20130424
  2. BLINDED FIDAXOMICIN [Suspect]
     Dosage: 1 TABLET, QD
     Route: 048
     Dates: start: 20130426, end: 20130427
  3. BLINDED FIDAXOMICIN [Suspect]
     Dosage: 1 TABLET, QD
     Route: 048
     Dates: start: 20130429, end: 20130429
  4. MICAFUNGIN [Suspect]
     Indication: SURGICAL PRECONDITIONING
     Dosage: 50 MG, QD
     Route: 042
     Dates: start: 20130328, end: 20130424
  5. TACROLIMUS SYSTEMIC [Suspect]
     Indication: RASH
     Dosage: 1 MG, QD
     Route: 042
     Dates: start: 20130410, end: 20130423
  6. TACROLIMUS SYSTEMIC [Suspect]
     Indication: HYPERKERATOSIS
     Dosage: 2.5 MG, Q12H
     Route: 048
     Dates: start: 20130423, end: 20130424
  7. VALACICLOVIR [Concomitant]
     Indication: ANTIVIRAL PROPHYLAXIS
     Dosage: 500 MG, QD
     Route: 048
     Dates: start: 20130328, end: 20130424
  8. VALACICLOVIR [Concomitant]
     Indication: ABDOMINAL PAIN UPPER
     Dosage: 80 MG, PRN
     Route: 048
     Dates: start: 20130421, end: 20130421
  9. VALACICLOVIR [Concomitant]
     Indication: NAUSEA
     Dosage: 500 MG, UID/QD
     Route: 048
     Dates: start: 20130426
  10. VALACICLOVIR [Concomitant]
     Dosage: 500 MG, Q12 HOURS
     Route: 048
  11. CENTRUM SILVER                     /02363801/ [Concomitant]
     Indication: VITAMIN SUPPLEMENTATION
     Dosage: 1 TABLET, QD
     Route: 048
     Dates: start: 20120820
  12. CENTRUM SILVER                     /02363801/ [Concomitant]
     Indication: MINERAL SUPPLEMENTATION
  13. VANCOMYCIN [Concomitant]
     Indication: FEBRILE NEUTROPENIA
     Dosage: 1.25 G, BID
     Route: 042
     Dates: start: 20130408, end: 20130422
  14. VANCOMYCIN [Concomitant]
     Indication: NEUTROPENIA
     Dosage: 1 G, BID
     Route: 042
     Dates: start: 20130507, end: 20130507
  15. VANCOMYCIN [Concomitant]
     Dosage: 1 G, Q12H
     Route: 042
     Dates: start: 20130511, end: 20130523
  16. FOSAMAX [Concomitant]
     Indication: OSTEOPOROSIS
     Dosage: 70 MG, QWK
     Route: 048
     Dates: start: 20120907
  17. CEFEPIME HCL [Concomitant]
     Indication: FEBRILE NEUTROPENIA
     Dosage: 2 G, TID
     Route: 042
     Dates: start: 20130408, end: 20130422
  18. CEFEPIME HCL [Concomitant]
     Indication: NEUTROPENIA
  19. CYCLOGYL [Concomitant]
     Dosage: 1 DROP TO EACH EYE, QD
     Route: 047
     Dates: start: 20130426
  20. CYCLOPENTOLATE [Concomitant]
     Indication: PUPIL DILATION PROCEDURE
     Dosage: 1 DROP, QD
     Route: 047
     Dates: start: 20130328, end: 20130424
  21. CYCLOPENTOLATE [Concomitant]
     Dosage: 1 DROP, QD
     Route: 047
     Dates: start: 20130507, end: 20130507
  22. PREDNISONE [Concomitant]
     Indication: SWELLING
     Dosage: 20 MG, QD
     Route: 048
     Dates: start: 20120907
  23. PREDNISONE [Concomitant]
     Indication: NEOPLASM MALIGNANT
     Dosage: 5 MG, QID
     Route: 048
     Dates: start: 20130218, end: 20130507
  24. PREDNISONE [Concomitant]
     Indication: INFLAMMATION
     Dosage: 10 MG, QD
     Route: 065
     Dates: start: 20130429
  25. PREDNISONE [Concomitant]
     Indication: NEOPLASM MALIGNANT
     Dosage: 40 MG, UID/QD
     Route: 048
  26. PREDNISONE [Concomitant]
     Dosage: 40 MG, QD
     Route: 048
  27. ASPIRIN [Concomitant]
     Indication: PAIN
     Dosage: 81 MG, QD
     Route: 048
     Dates: start: 20121005
  28. MAGNESIUM SULFATE [Concomitant]
     Indication: PROPHYLAXIS
     Dosage: 2 G, SINGLE
     Route: 042
     Dates: start: 20130415, end: 20130422
  29. MAGNESIUM OXIDE [Concomitant]
     Indication: ANTACID THERAPY
     Dosage: 800 MG, SINGLE
     Route: 048
     Dates: start: 20130414, end: 20130417
  30. CIPROFLOXACIN [Concomitant]
     Indication: OPPORTUNISTIC INFECTION PROPHYLAXIS
     Dosage: 500 MG, QD
     Route: 048
     Dates: start: 20130326
  31. DISODIUM PHOSPHATE [Concomitant]
     Indication: ELECTROLYTE SUBSTITUTION THERAPY
     Dosage: 2 TABLET, Q4H
     Route: 048
     Dates: start: 20130410, end: 20130422
  32. DISODIUM PHOSPHATE [Concomitant]
     Indication: ELECTROLYTE SUBSTITUTION THERAPY
  33. MYCOPHENOLATE [Concomitant]
     Indication: TRANSPLANT
     Dosage: 250 MG, TID
     Route: 048
     Dates: start: 20130409, end: 20130424
  34. MYCOPHENOLATE [Concomitant]
     Dosage: 250 MG, TID
     Route: 048
     Dates: start: 20130409, end: 20130424
  35. MYCOPHENOLATE [Concomitant]
     Dosage: 250 MG, Q8HR
     Route: 048
  36. MYCOPHENOLATE [Concomitant]
     Dosage: 250 MG, Q8HR
     Route: 048
  37. FLUCONAZOLE [Concomitant]
     Indication: ANTIFUNGAL TREATMENT
     Dosage: 200 MG, QD
     Route: 048
     Dates: start: 20130326
  38. PROTONIX [Concomitant]
     Dosage: 40 MG, QD
     Route: 048
     Dates: start: 20130426
  39. PANTOPRAZOLE SODIUM [Concomitant]
     Indication: GASTROOESOPHAGEAL REFLUX DISEASE
     Dosage: 40 MG, QD
     Route: 048
     Dates: start: 20130328, end: 20130424
  40. PANTOPRAZOLE SODIUM [Concomitant]
     Indication: GASTROOESOPHAGEAL REFLUX PROPHYLAXIS
     Dosage: 40 MG, QD
     Route: 048
     Dates: start: 20130507, end: 20130507
  41. PANTOPRAZOLE SODIUM [Concomitant]
     Indication: GASTROOESOPHAGEAL REFLUX PROPHYLAXIS
     Dosage: 40 MG, QD
     Route: 048
     Dates: start: 20130522, end: 20130523
  42. ADVAIR [Concomitant]
     Indication: STEROID THERAPY
     Dosage: 250 MG, BID
     Route: 048
     Dates: start: 20130402
  43. ADVAIR [Concomitant]
     Dosage: 250-50 MCG/DOSE; 1 PUFF, BID
     Route: 055
     Dates: start: 20130426
  44. URSODIOL [Concomitant]
     Indication: SARCOIDOSIS
     Dosage: 300 MG, BID
     Route: 048
     Dates: start: 20130328, end: 20130424
  45. URSODIOL [Concomitant]
     Dosage: 300 MG, Q12HR
     Route: 048
  46. URSODIOL [Concomitant]
     Dosage: 300 MG, Q12HR
     Route: 048
  47. SPIRIVA HANDIHALER [Concomitant]
     Dosage: 1 PUFF, HS
     Route: 055
     Dates: start: 20130426
  48. TIOTROPIUM BROMIDE [Concomitant]
     Indication: PROPHYLAXIS AGAINST BRONCHOSPASM
     Dosage: 18 ?G, QD
     Route: 055
     Dates: start: 20130328, end: 20130422
  49. ACETAMINOPHEN [Concomitant]
     Indication: PYREXIA
     Dosage: 500 MG, PRN
     Route: 048
     Dates: start: 20130302, end: 20130420
  50. GUAIFENESIN W/DEXTROMETHORPHAN [Concomitant]
     Indication: COUGH
     Dosage: 5 ML, PRN
     Route: 048
     Dates: start: 20130331, end: 20130423
  51. PNEUMOVAX 23 [Concomitant]
     Dosage: 25 ?G/0.5 ML, 0.5ML, SINGLE
     Route: 030
     Dates: start: 20110817
  52. NOXAFIL [Concomitant]
     Dosage: 5 ML (200 MG), TID
     Route: 048
     Dates: start: 20130426
  53. NOXAFIL [Concomitant]
     Dosage: 200MG/5 ML(40MG/ML)5ML TID
     Route: 048
  54. NOXAFIL [Concomitant]
     Dosage: 200MG/5ML (40MG/ML) 5ML, TID
  55. ASMANEX [Concomitant]
     Dosage: 1 PUFF, BID
     Route: 055
     Dates: start: 20130426
  56. ASMANEX [Concomitant]
     Dosage: 1 PUFF, BID PRN
     Route: 055
  57. ASMANEX [Concomitant]
     Dosage: 1 PUFF, BID PRN
     Route: 055
  58. OMNIPRED [Concomitant]
     Dosage: 1 DROP, QOD
     Route: 047
     Dates: start: 20130426
  59. HYDREA [Concomitant]
     Dosage: 2 TABLETS IN THE MORNING AND 2 IN THE AFTERNOON
     Route: 048
     Dates: start: 20130429
  60. ALLOPURINOL [Concomitant]
     Indication: BLOOD URIC ACID INCREASED
     Dosage: 300 MG, QD
     Route: 048
     Dates: start: 20130328, end: 20130424
  61. ALLOPURINOL [Concomitant]
     Indication: BLOOD URIC ACID INCREASED
  62. FILGRASTIM [Concomitant]
     Indication: NEUTROPENIA
     Dosage: 215 ?G, QD
     Route: 058
     Dates: start: 20130409, end: 20130423
  63. NYSTATIN [Concomitant]
     Indication: FUNGAL INFECTION
     Dosage: 5 ML, QID
     Route: 048
     Dates: start: 20130330, end: 20130424
  64. NYSTATIN [Concomitant]
     Dosage: 5 ML, PRN/Q2HR
     Route: 048
     Dates: start: 20130515, end: 20130519
  65. PREDNISOLONE [Concomitant]
     Indication: NEOPLASM MALIGNANT
     Dosage: 1 DROP, Q48HR
     Route: 048
     Dates: start: 20130214, end: 20130507
  66. PREDNISOLONE [Concomitant]
     Indication: INFLAMMATION
  67. PREDNISOLONE [Concomitant]
     Indication: ASTHMA
  68. SUCRALFATE [Concomitant]
     Indication: ABDOMINAL DISCOMFORT
     Dosage: 1 G, Q8H
     Route: 048
     Dates: start: 20130419, end: 20130424
  69. SUCRALFATE [Concomitant]
     Indication: ABDOMINAL DISCOMFORT
  70. FUROSEMIDE [Concomitant]
     Indication: SWELLING
     Dosage: 20 MG, TWICE
     Route: 048
     Dates: start: 20130314, end: 20130421
  71. FUROSEMIDE [Concomitant]
     Indication: HYPERTENSION
  72. FUROSEMIDE [Concomitant]
     Indication: HYPERTENSION
  73. LOPERAMIDE [Concomitant]
     Indication: DIARRHOEA
     Dosage: 2 MG, PRN
     Route: 048
     Dates: start: 20130409, end: 20130416
  74. LOPERAMIDE [Concomitant]
     Dosage: 2 MG, BID
     Route: 048
     Dates: start: 20130411, end: 20130420
  75. POTASSIUM CHLORIDE [Concomitant]
     Indication: HYPOKALAEMIA
     Dosage: 20 MEQ, BID
     Route: 048
     Dates: start: 20130409, end: 20130421
  76. ONDANSETRON [Concomitant]
     Indication: PROPHYLAXIS OF NAUSEA AND VOMITING
     Dosage: 8 MG, BID
     Route: 042
     Dates: start: 20130329, end: 20130423
  77. ONDANSETRON [Concomitant]
     Dosage: 8 MG, PRN
     Route: 042
     Dates: start: 20130416, end: 20130418
  78. METOCLOPRAMIDE [Concomitant]
     Indication: NAUSEA
     Dosage: 10 MG, SINGLE
     Route: 042
     Dates: start: 20130418, end: 20130418
  79. METOCLOPRAMIDE [Concomitant]
     Indication: VOMITING
     Dosage: 5 MG, SINGLE
     Route: 042
     Dates: start: 20130422, end: 20130422
  80. SIMETHICONE [Concomitant]
     Indication: ABDOMINAL PAIN UPPER
     Dosage: 80 MG, PRN
     Route: 048
     Dates: start: 20130421, end: 20130421
  81. SIMETHICONE [Concomitant]
     Indication: NAUSEA
  82. SIMETHICONE [Concomitant]
     Indication: ABDOMINAL PAIN UPPER
  83. SIMETHICONE [Concomitant]
     Indication: NAUSEA

REACTIONS (2)
  - Febrile neutropenia [Recovered/Resolved]
  - Pyrexia [Recovered/Resolved]
